FAERS Safety Report 4385467-X (Version None)
Quarter: 2004Q2

REPORT INFORMATION
  Report Type: 
  Country: None (occurrence: None)
  Receive Date: 20040622
  Receipt Date: 20040608
  Transmission Date: 20050107
  Serious: Yes (Death)
  Sender: FDA-Public Use
  Company Number: 2004-UK-00549UK

PATIENT
  Age: 84 Year
  Sex: Male

DRUGS (3)
  1. PERSANTIN [Suspect]
     Dosage: 400 MG (TWICE DAILY), PO
     Route: 048
     Dates: end: 20040430
  2. ASPIRIN [Suspect]
     Dosage: 75 MG (ONCE DAILY), PO
     Route: 048
     Dates: end: 20040430
  3. CHLOMETHIAZOLE (CLOMETHIAZOLE) [Concomitant]

REACTIONS (1)
  - HAEMATEMESIS [None]
